FAERS Safety Report 14831632 (Version 1)
Quarter: 2018Q2

REPORT INFORMATION
  Report Type: Spontaneous
  Country: US (occurrence: US)
  Receive Date: 20180410
  Receipt Date: 20180410
  Transmission Date: 20180711
  Serious: Yes (Other)
  Sender: FDA-Public Use
  Company Number: None

PATIENT
  Age: 58 Year
  Sex: Female
  Weight: 76.5 kg

DRUGS (2)
  1. DUPIXENT [Suspect]
     Active Substance: DUPILUMAB
     Indication: ECZEMA
     Route: 042
     Dates: start: 20180214, end: 20180315
  2. DUPIXENT [Concomitant]
     Active Substance: DUPILUMAB
     Dates: start: 20180214, end: 20180315

REACTIONS (3)
  - Herpes zoster [None]
  - Hot flush [None]
  - Eye infection [None]

NARRATIVE: CASE EVENT DATE: 20180315
